FAERS Safety Report 20554714 (Version 2)
Quarter: 2022Q1

REPORT INFORMATION
  Report Type: Spontaneous
  Country: US (occurrence: US)
  Receive Date: 20220304
  Receipt Date: 20220325
  Transmission Date: 20220423
  Serious: No
  Sender: FDA-Public Use
  Company Number: US-TRIS PHARMA, INC.-22US010098

PATIENT

DRUGS (1)
  1. QUILLICHEW ER [Suspect]
     Active Substance: METHYLPHENIDATE HYDROCHLORIDE
     Indication: Attention deficit hyperactivity disorder
     Dosage: UNK, QD
     Dates: start: 202106

REACTIONS (4)
  - Morose [Not Recovered/Not Resolved]
  - Product dose omission issue [Unknown]
  - Abnormal behaviour [Not Recovered/Not Resolved]
  - Therapeutic response shortened [Unknown]
